FAERS Safety Report 8251983-3 (Version None)
Quarter: 2012Q2

REPORT INFORMATION
  Report Type: 
  Country: None (occurrence: None)
  Receive Date: 20120402
  Receipt Date: 20120329
  Transmission Date: 20120825
  Serious: Yes (Death)
  Sender: FDA-Public Use
  Company Number: PHHY2012DK015794

PATIENT
  Sex: Female

DRUGS (7)
  1. METHOTREXATE [Concomitant]
     Route: 058
     Dates: start: 20070604
  2. REMICADE [Suspect]
     Indication: RHEUMATOID ARTHRITIS
     Dosage: 300 MG
     Route: 042
     Dates: start: 20021126, end: 20071108
  3. PREDNISOLONE [Concomitant]
     Dates: start: 20051213
  4. METHOTREXATE [Concomitant]
     Route: 030
     Dates: start: 20070313
  5. METHOTREXATE [Concomitant]
     Dosage: 15 MG/WEEK
     Dates: start: 20071127
  6. METHOTREXATE [Suspect]
     Indication: RHEUMATOID ARTHRITIS
     Dosage: 2.5 MG
     Route: 048
     Dates: start: 20031014, end: 20060608
  7. METHOTREXATE [Suspect]
     Dosage: 5 MG/WEEK
     Dates: start: 20060608, end: 20071108

REACTIONS (2)
  - THYROID CANCER [None]
  - LUNG ADENOCARCINOMA [None]
